FAERS Safety Report 6577031-9 (Version None)
Quarter: 2010Q1

REPORT INFORMATION
  Report Type: 
  Country: None (occurrence: None)
  Receive Date: 20100210
  Receipt Date: 20100203
  Transmission Date: 20100710
  Serious: Yes (Hospitalization)
  Sender: FDA-Public Use
  Company Number: FR-ELI_LILLY_AND_COMPANY-FR201002001155

PATIENT
  Sex: Male
  Weight: 78 kg

DRUGS (13)
  1. PEMETREXED [Suspect]
     Indication: NON-SMALL CELL LUNG CANCER
     Dosage: 500 MG/M2, DAY 1 EVERY 21 DAYS
     Route: 042
     Dates: start: 20091125
  2. CISPLATIN [Suspect]
     Indication: NON-SMALL CELL LUNG CANCER
     Dosage: 75 MG/M2, DAY 1 EVERY 21 DAYS
     Route: 042
     Dates: start: 20091125
  3. FOLIC ACID [Concomitant]
     Indication: PROPHYLAXIS
     Dates: start: 20091116
  4. VITAMIN B-12 [Concomitant]
     Indication: PROPHYLAXIS
     Dates: start: 20091116
  5. DEXAMETHASONE [Concomitant]
     Indication: PROPHYLAXIS
     Dates: start: 20091116
  6. EMEND [Concomitant]
     Dosage: 80 MG, DAILY (1/D) IN MORNING
     Route: 048
     Dates: start: 20100128, end: 20100128
  7. TAHOR [Concomitant]
     Dosage: 10 MG, DAILY (1/D) IN EVENING
     Route: 048
     Dates: start: 20100126
  8. NEXIUM [Concomitant]
     Dosage: 20 MG, DAILY (1/D) IN EVENING
     Route: 048
     Dates: start: 20100126
  9. AMAREL [Concomitant]
     Dosage: 3 MG, DAILY (1/D)
     Route: 048
     Dates: start: 20100126
  10. OXYCONTIN [Concomitant]
     Dosage: 10 MG, 2/D, MORN AND EVE
     Route: 048
     Dates: start: 20100126, end: 20100201
  11. MYOLASTAN [Concomitant]
     Dosage: 50 MG, DAILY (1/D)
     Route: 048
     Dates: start: 20100126
  12. XOLOF [Concomitant]
     Dosage: 100 MG, DAILY (1/D)
     Dates: start: 20100126
  13. OXYNORM [Concomitant]
     Dosage: 5 MG, EVERY 4 HRS
     Route: 048
     Dates: start: 20100126, end: 20100201

REACTIONS (1)
  - DIABETES MELLITUS INADEQUATE CONTROL [None]
